FAERS Safety Report 6305345-6 (Version None)
Quarter: 2009Q3

REPORT INFORMATION
  Report Type: 
  Country: None (occurrence: None)
  Receive Date: 20090811
  Receipt Date: 20090805
  Transmission Date: 20100115
  Serious: No
  Sender: FDA-Public Use
  Company Number: JP-EISAI INC.-E2090-00800-SPO-JP

PATIENT
  Sex: Female

DRUGS (4)
  1. TRERIEF [Suspect]
     Indication: PARKINSON'S DISEASE
     Route: 048
     Dates: start: 20090608, end: 20090707
  2. L-DOPA [Concomitant]
  3. DOPAMINE HCL [Concomitant]
  4. SELEGILINE [Concomitant]

REACTIONS (2)
  - PLATELET COUNT DECREASED [None]
  - WHITE BLOOD CELL COUNT DECREASED [None]
